FAERS Safety Report 9019876 (Version 1)
Quarter: 2013Q1

REPORT INFORMATION
  Report Type: Spontaneous
  Country: US (occurrence: US)
  Receive Date: 20130118
  Receipt Date: 20130118
  Transmission Date: 20140127
  Serious: Yes (Hospitalization)
  Sender: FDA-Public Use
  Company Number: US-ROXANE LABORATORIES, INC.-2013-RO-00078RO

PATIENT
  Age: 47 Year
  Sex: Male

DRUGS (2)
  1. METHOTREXATE [Suspect]
     Indication: BURKITT^S LYMPHOMA
  2. ESOMEPRAZOLE [Suspect]
     Indication: BURKITT^S LYMPHOMA

REACTIONS (1)
  - Drug clearance decreased [Recovered/Resolved]
